FAERS Safety Report 6770635-X (Version None)
Quarter: 2010Q2

REPORT INFORMATION
  Report Type: 
  Country: None (occurrence: None)
  Receive Date: 20100615
  Receipt Date: 20100603
  Transmission Date: 20101027
  Serious: Yes (Life-Threatening)
  Sender: FDA-Public Use
  Company Number: CR-GENENTECH-302722

PATIENT
  Sex: Female
  Weight: 62 kg

DRUGS (5)
  1. RITUXIMAB [Suspect]
     Indication: SYSTEMIC LUPUS ERYTHEMATOSUS
     Dosage: 2000 UNK, UNK
     Route: 042
     Dates: start: 20090301, end: 20100104
  2. PREDNISONE [Suspect]
     Indication: SYSTEMIC LUPUS ERYTHEMATOSUS
     Dosage: UNK
     Route: 048
     Dates: start: 20070101
  3. HYDROXYCHLOROQUINE [Concomitant]
     Indication: SYSTEMIC LUPUS ERYTHEMATOSUS
     Dosage: UNK
     Route: 048
     Dates: start: 20070213
  4. ENALAPRIL MALEATE [Concomitant]
     Indication: NEPHROPATHY
     Dosage: UNK
     Route: 048
     Dates: start: 20091102
  5. ALENDRONIC ACID [Concomitant]
     Indication: OSTEOPOROSIS PROPHYLAXIS
     Dosage: 70 MG, 1/MONTH
     Route: 048
     Dates: start: 20091102

REACTIONS (1)
  - PULMONARY TUBERCULOSIS [None]
